FAERS Safety Report 9265434 (Version 2)
Quarter: 2013Q2

REPORT INFORMATION
  Report Type: Spontaneous
  Country: JP (occurrence: JP)
  Receive Date: 20130501
  Receipt Date: 20130627
  Transmission Date: 20140414
  Serious: Yes (Hospitalization)
  Sender: FDA-Public Use
  Company Number: JP-ASTRAZENECA-2013SE24657

PATIENT
  Age: 10019 Day
  Sex: Female
  Weight: 46 kg

DRUGS (4)
  1. NEXIUM [Suspect]
     Indication: PROPHYLAXIS AGAINST GASTROINTESTINAL ULCER
     Route: 048
     Dates: start: 20120911, end: 201303
  2. PREDNISOLONE [Concomitant]
     Indication: SYSTEMIC LUPUS ERYTHEMATOSUS
     Dosage: DOSE DECREASE AS FOLLOWS: 18MG, 10MG, THEN 3MG
     Route: 048
  3. JUVELA N [Concomitant]
     Indication: SYSTEMIC LUPUS ERYTHEMATOSUS
     Route: 048
     Dates: end: 201303
  4. BONOTEO [Concomitant]
     Indication: OSTEOPOROSIS PROPHYLAXIS
     Route: 048
     Dates: end: 201303

REACTIONS (2)
  - Pyrexia [Unknown]
  - Hepatic function abnormal [Recovering/Resolving]
